FAERS Safety Report 4802023-7 (Version None)
Quarter: 2005Q4

REPORT INFORMATION
  Report Type: 
  Country: None (occurrence: None)
  Receive Date: 20051011
  Receipt Date: 20050926
  Transmission Date: 20060501
  Serious: Yes (Hospitalization, Other)
  Sender: FDA-Public Use
  Company Number: 2005062220

PATIENT
  Age: 69 Year
  Sex: Female
  Weight: 116.5744 kg

DRUGS (15)
  1. BEXTRA [Suspect]
     Indication: ARTHRALGIA
     Dosage: 10 MG (10 MG, 1 IN1 D)
     Dates: start: 20040101
  2. BEXTRA [Suspect]
     Indication: ARTHRITIS
     Dosage: 10 MG (10 MG, 1 IN1 D)
     Dates: start: 20040101
  3. BEXTRA [Suspect]
     Indication: ARTHROPATHY
     Dosage: 10 MG (10 MG, 1 IN1 D)
     Dates: start: 20040101
  4. VIOXX [Concomitant]
  5. KCL (POTASSIUM CHLORIDE) [Concomitant]
  6. ZYRTEC [Concomitant]
  7. ALPRAZOLAM [Concomitant]
  8. HUMULIN (INSULIN HUMAN, INSULIN ISOPHANE, HUMAN BIOSYNTHETIC) [Concomitant]
  9. LASIX [Concomitant]
  10. PREMARIN [Concomitant]
  11. AVANDAMET (METFORMIN HYDROCHLORIDE, ROSIGLITAZONE) [Concomitant]
  12. TENORMIN [Concomitant]
  13. DIOVAN HCT [Concomitant]
  14. CLONIDINE [Concomitant]
  15. MECLIZINE [Concomitant]

REACTIONS (21)
  - ARRHYTHMIA [None]
  - ATRIOVENTRICULAR BLOCK SECOND DEGREE [None]
  - BLISTER [None]
  - BLOOD CREATINE PHOSPHOKINASE INCREASED [None]
  - CARDIAC MURMUR [None]
  - CHEST PAIN [None]
  - DYSPNOEA PAROXYSMAL NOCTURNAL [None]
  - FALL [None]
  - GLYCOSURIA [None]
  - HYPERSENSITIVITY [None]
  - JOINT INJURY [None]
  - LOSS OF CONSCIOUSNESS [None]
  - ORTHOPNOEA [None]
  - POSTOPERATIVE INFECTION [None]
  - PRURITUS [None]
  - RASH MORBILLIFORM [None]
  - RESPIRATORY RATE INCREASED [None]
  - SINUS BRADYCARDIA [None]
  - SYNCOPE [None]
  - TREATMENT NONCOMPLIANCE [None]
  - WHITE BLOOD CELLS URINE POSITIVE [None]
